FAERS Safety Report 10229307 (Version 1)
Quarter: 2014Q2

REPORT INFORMATION
  Report Type: Spontaneous
  Country: US (occurrence: US)
  Receive Date: 20140611
  Receipt Date: 20140611
  Transmission Date: 20141212
  Serious: Yes (Hospitalization, Other)
  Sender: FDA-Public Use
  Company Number: US-BIOGENIDEC-2014BI054697

PATIENT
  Sex: Female
  Weight: 68 kg

DRUGS (6)
  1. AVONEX [Suspect]
     Indication: SECONDARY PROGRESSIVE MULTIPLE SCLEROSIS
     Route: 030
  2. AMPYRA [Concomitant]
     Indication: PRODUCT USED FOR UNKNOWN INDICATION
     Route: 048
  3. BACLOFEN [Concomitant]
     Indication: ARTHRITIS
  4. FUROSEMIDE [Concomitant]
  5. LOSARTAN POTASSIUM [Concomitant]
  6. WARFARIN SODIUM [Concomitant]

REACTIONS (25)
  - Deep vein thrombosis [Unknown]
  - Peripheral embolism [Unknown]
  - Incoherent [Not Recovered/Not Resolved]
  - Abasia [Unknown]
  - Amnesia [Unknown]
  - Secondary progressive multiple sclerosis [Unknown]
  - Oedema peripheral [Unknown]
  - Erythema [Unknown]
  - Diplopia [Unknown]
  - Vision blurred [Unknown]
  - Disturbance in attention [Unknown]
  - Decreased vibratory sense [Unknown]
  - Hypotonia [Unknown]
  - Areflexia [Unknown]
  - Photosensitivity reaction [Unknown]
  - Irritability [Unknown]
  - Dyskinesia [Unknown]
  - Photophobia [Unknown]
  - Vertigo [Unknown]
  - Coordination abnormal [Unknown]
  - Frustration [Unknown]
  - Muscle spasms [Unknown]
  - Muscular weakness [Unknown]
  - Chills [Unknown]
  - Pruritus [Unknown]
